FAERS Safety Report 20168560 (Version 1)
Quarter: 2021Q4

REPORT INFORMATION
  Report Type: Spontaneous
  Country: IN (occurrence: IN)
  Receive Date: 20211210
  Receipt Date: 20211210
  Transmission Date: 20220304
  Serious: Yes (Hospitalization, Other)
  Sender: FDA-Public Use
  Company Number: IN-VIWITPHARMA-2021VWTLIT00014

PATIENT
  Age: 16 Year
  Sex: Female
  Weight: 48 kg

DRUGS (6)
  1. TOPIRAMATE [Suspect]
     Active Substance: TOPIRAMATE
     Indication: Seizure
     Route: 065
  2. TOPIRAMATE [Suspect]
     Active Substance: TOPIRAMATE
     Route: 065
  3. TOPIRAMATE [Suspect]
     Active Substance: TOPIRAMATE
     Route: 065
  4. LEVETIRACETAM [Suspect]
     Active Substance: LEVETIRACETAM
     Indication: Seizure
     Route: 065
  5. PHENOBARBITAL [Suspect]
     Active Substance: PHENOBARBITAL
     Indication: Seizure
     Route: 065
  6. ESCITALOPRAM [Interacting]
     Active Substance: ESCITALOPRAM OXALATE
     Indication: Anorexia nervosa
     Route: 065

REACTIONS (11)
  - Drug abuse [Unknown]
  - Anorexia nervosa [Unknown]
  - Overdose [Unknown]
  - Borderline personality disorder [Unknown]
  - Intentional self-injury [Unknown]
  - Suicidal ideation [Unknown]
  - Hypophagia [Unknown]
  - Abnormal behaviour [Unknown]
  - Weight decreased [Recovering/Resolving]
  - Weight increased [Unknown]
  - Treatment noncompliance [Unknown]
